FAERS Safety Report 5301121-1 (Version None)
Quarter: 2007Q2

REPORT INFORMATION
  Report Type: 
  Country: None (occurrence: None)
  Receive Date: 20070418
  Receipt Date: 20070406
  Transmission Date: 20071010
  Serious: Yes (Hospitalization)
  Sender: FDA-Public Use
  Company Number: HQWYE986107MAR07

PATIENT
  Sex: Female
  Weight: 60 kg

DRUGS (12)
  1. ENBREL [Suspect]
     Indication: RHEUMATOID ARTHRITIS
     Route: 058
     Dates: start: 20061130, end: 20070301
  2. PROGRAF [Suspect]
     Indication: RHEUMATOID ARTHRITIS
     Route: 048
     Dates: start: 20051027, end: 20070306
  3. PREDONINE [Suspect]
     Indication: RHEUMATOID ARTHRITIS
     Route: 048
     Dates: end: 20070306
  4. VOLTAREN [Suspect]
     Indication: RHEUMATOID ARTHRITIS
     Route: 054
     Dates: end: 20070306
  5. HYPEN [Suspect]
     Indication: RHEUMATOID ARTHRITIS
     Route: 048
     Dates: end: 20070306
  6. METHOTREXATE [Suspect]
     Indication: RHEUMATOID ARTHRITIS
     Dosage: 2.5 MG, FREQUENCY UNKNOWN
     Dates: end: 20070306
  7. ISCOTIN [Suspect]
     Route: 048
     Dates: start: 20060420, end: 20070306
  8. FOLIAMIN [Concomitant]
     Route: 048
     Dates: end: 20070306
  9. KOLANTYL [Concomitant]
     Route: 048
     Dates: end: 20070306
  10. DIOVAN [Concomitant]
     Indication: HYPERTENSION
     Route: 048
     Dates: end: 20070306
  11. ONE-ALPHA [Concomitant]
     Indication: OSTEOPOROSIS
     Dates: end: 20070306
  12. GASTER [Concomitant]
     Indication: GASTRIC ULCER
     Route: 048
     Dates: start: 20070301, end: 20070306

REACTIONS (3)
  - CONDITION AGGRAVATED [None]
  - HEPATITIS B [None]
  - HEPATORENAL SYNDROME [None]
